FAERS Safety Report 7935257-3 (Version None)
Quarter: 2011Q4

REPORT INFORMATION
  Report Type: 
  Country: None (occurrence: None)
  Receive Date: 20111122
  Receipt Date: 20111118
  Transmission Date: 20120403
  Serious: Yes (Other)
  Sender: FDA-Public Use
  Company Number: GB-PFIZER INC-2011284957

PATIENT
  Age: 49 Year
  Sex: Male
  Weight: 89 kg

DRUGS (6)
  1. ATORVASTATIN CALCIUM [Suspect]
     Dosage: 80 MG UNIT DOSE
     Dates: start: 20110915
  2. CLOPIDOGREL [Concomitant]
     Dosage: UNK
     Dates: start: 20110815
  3. SIMVASTATIN [Concomitant]
     Dosage: UNK
     Dates: start: 20110815, end: 20110912
  4. RAMIPRIL [Concomitant]
     Dosage: UNK
     Dates: start: 20110816
  5. ACETYLSALICYLIC ACID [Concomitant]
     Dosage: UNK
     Dates: start: 20110815
  6. BISOPROLOL [Concomitant]
     Dosage: UNK
     Dates: start: 20110816

REACTIONS (2)
  - NIGHTMARE [None]
  - SLEEP DISORDER [None]
